FAERS Safety Report 8303877-2 (Version None)
Quarter: 2012Q2

REPORT INFORMATION
  Report Type: 
  Country: None (occurrence: None)
  Receive Date: 20120423
  Receipt Date: 20120418
  Transmission Date: 20120825
  Serious: Yes (Hospitalization, Disabling)
  Sender: FDA-Public Use
  Company Number: PHFR2012GB001495

PATIENT
  Sex: Male

DRUGS (1)
  1. CLOZARIL [Suspect]
     Indication: SCHIZOPHRENIA
     Route: 048
     Dates: start: 19940510

REACTIONS (6)
  - FAECALOMA [None]
  - GASTROINTESTINAL OBSTRUCTION [None]
  - GASTRIC DISORDER [None]
  - SCHIZOPHRENIA [None]
  - FAECAL VOMITING [None]
  - HUNTINGTON'S DISEASE [None]
